FAERS Safety Report 10541070 (Version 2)
Quarter: 2014Q4

REPORT INFORMATION
  Report Type: Spontaneous
  Country: US (occurrence: US)
  Receive Date: 20141024
  Receipt Date: 20141118
  Transmission Date: 20150529
  Serious: Yes (Other)
  Sender: FDA-Public Use
  Company Number: US-ACTELION-A-NJ2014-106951

PATIENT
  Age: 82 Year
  Sex: Female

DRUGS (1)
  1. OPSUMIT [Suspect]
     Active Substance: MACITENTAN
     Indication: PULMONARY ARTERIAL HYPERTENSION
     Dosage: 10 MG, QD
     Route: 048
     Dates: start: 201409

REACTIONS (7)
  - Oedema peripheral [Unknown]
  - Dizziness [Unknown]
  - Atrial fibrillation [Unknown]
  - Fluid retention [Unknown]
  - Swelling [Unknown]
  - Flushing [Unknown]
  - Condition aggravated [Unknown]
